FAERS Safety Report 4378333-7 (Version None)
Quarter: 2004Q2

REPORT INFORMATION
  Report Type: 
  Country: None (occurrence: None)
  Receive Date: 20040601
  Receipt Date: 20040305
  Transmission Date: 20050107
  Serious: No
  Sender: FDA-Public Use
  Company Number: WAES 0403USA00620

PATIENT
  Age: 77 Year
  Sex: Female

DRUGS (5)
  1. ZETIA [Suspect]
     Indication: BLOOD CHOLESTEROL INCREASED
     Dosage: 10 MG/DAILY/PO
     Route: 048
     Dates: start: 20040227
  2. COUMADIN [Concomitant]
  3. LANOXIN [Concomitant]
  4. MIACALCIN [Concomitant]
  5. VERAPAMIL [Concomitant]

REACTIONS (1)
  - VISION BLURRED [None]
